FAERS Safety Report 6616676-4 (Version None)
Quarter: 2010Q1

REPORT INFORMATION
  Report Type: 
  Country: None (occurrence: None)
  Receive Date: 20100305
  Receipt Date: 20100225
  Transmission Date: 20100710
  Serious: Yes (Life-Threatening, Hospitalization)
  Sender: FDA-Public Use
  Company Number: US-GENENTECH-297628

PATIENT
  Sex: Female
  Weight: 58.957 kg

DRUGS (4)
  1. RITUXAN [Suspect]
     Indication: CHRONIC LYMPHOCYTIC LEUKAEMIA
     Dosage: 375 MG/M2, X1
     Route: 042
     Dates: start: 20100128, end: 20100129
  2. DEMEROL [Concomitant]
     Indication: PREMEDICATION
  3. SOLU-MEDROL [Concomitant]
     Indication: PREMEDICATION
  4. TYLENOL-500 [Concomitant]
     Indication: PREMEDICATION

REACTIONS (3)
  - CHROMATURIA [None]
  - INTRAVASCULAR HAEMOLYSIS [None]
  - METHAEMOGLOBINAEMIA [None]
